FAERS Safety Report 12135099 (Version 3)
Quarter: 2018Q2

REPORT INFORMATION
  Report Type: Report from Study
  Country: US (occurrence: US)
  Receive Date: 20160301
  Receipt Date: 20180612
  Transmission Date: 20180711
  Serious: Yes (Death, Life-Threatening, Hospitalization, Other)
  Sender: FDA-Public Use
  Company Number: US-TAKEDA-2016MPI001324

PATIENT
  Age: 44 Year
  Sex: Female
  Weight: 136.5 kg

DRUGS (17)
  1. FLAGYL [Concomitant]
     Active Substance: METRONIDAZOLE\METRONIDAZOLE HYDROCHLORIDE
     Dosage: 500 MG, Q8HR
     Route: 042
  2. MERREM [Concomitant]
     Active Substance: MEROPENEM
     Dosage: 500 MG, Q8HR
     Route: 042
  3. NEUPOGEN [Concomitant]
     Active Substance: FILGRASTIM
     Dosage: 480 ?G, UNK
     Route: 042
  4. MITOXANTRONE [Suspect]
     Active Substance: MITOXANTRONE HYDROCHLORIDE
     Indication: ACUTE MYELOID LEUKAEMIA
     Dosage: 14.04 MG, UNK
     Route: 042
     Dates: start: 20160211, end: 20160216
  5. VANCOMYCIN [Concomitant]
     Active Substance: VANCOMYCIN
     Dosage: 1.5 G, UNK
     Route: 042
  6. NOXAFIL [Concomitant]
     Active Substance: POSACONAZOLE
     Dosage: 300 MG, UNK
     Route: 065
  7. IXAZOMIB [Suspect]
     Active Substance: IXAZOMIB
     Indication: ACUTE MYELOID LEUKAEMIA
     Dosage: 1 MG, UNK
     Route: 048
     Dates: start: 20160211, end: 20160222
  8. VANCOMYCIN [Concomitant]
     Active Substance: VANCOMYCIN
     Dosage: 1.25 G, QD
     Route: 042
  9. ZOVIRAX [Concomitant]
     Active Substance: ACYCLOVIR
     Dosage: 250 MG, QD
     Route: 042
  10. AZACTAM [Concomitant]
     Active Substance: AZTREONAM
     Dosage: 2 G, Q6HR
     Route: 042
  11. MYCAMINE [Concomitant]
     Active Substance: MICAFUNGIN SODIUM
     Dosage: 100 MG, UNK
     Route: 042
  12. CYTARABINE. [Suspect]
     Active Substance: CYTARABINE
     Indication: ACUTE MYELOID LEUKAEMIA
     Dosage: 2340 MG, UNK
     Route: 042
     Dates: start: 20160211, end: 20160216
  13. ZYVOX [Concomitant]
     Active Substance: LINEZOLID
     Dosage: 6000 MG, BID
     Route: 042
  14. MYCOSTATIN [Concomitant]
     Active Substance: NYSTATIN
     Dosage: 5 ML, Q8HR
     Route: 042
  15. ZOSYN [Concomitant]
     Active Substance: PIPERACILLIN SODIUM\TAZOBACTAM SODIUM
     Dosage: 3.375 G, UNK
     Route: 042
  16. ETOPOSIDE. [Suspect]
     Active Substance: ETOPOSIDE
     Indication: ACUTE MYELOID LEUKAEMIA
     Dosage: 187.2 MG, UNK
     Route: 042
     Dates: start: 20160211, end: 20160216
  17. ZOVIRAX [Concomitant]
     Active Substance: ACYCLOVIR
     Dosage: 400 MG, BID
     Route: 048

REACTIONS (16)
  - Fungal infection [Not Recovered/Not Resolved]
  - Ileus [Recovered/Resolved]
  - Hypotension [Recovered/Resolved]
  - Acute kidney injury [Recovered/Resolved]
  - Intestinal dilatation [Recovered/Resolved]
  - Large intestinal obstruction [Unknown]
  - Blood lactic acid increased [Recovered/Resolved]
  - Acute respiratory failure [Recovered/Resolved]
  - Febrile neutropenia [Recovered/Resolved]
  - Intestinal ischaemia [Fatal]
  - Bacterial sepsis [Recovered/Resolved]
  - Multiple organ dysfunction syndrome [Recovered/Resolved]
  - Sepsis [Recovered/Resolved]
  - Hepatosplenic candidiasis [Not Recovered/Not Resolved]
  - Tachycardia [Recovered/Resolved]
  - Staphylococcal infection [Recovered/Resolved]

NARRATIVE: CASE EVENT DATE: 20160223
